FAERS Safety Report 6083748-5 (Version None)
Quarter: 2009Q1

REPORT INFORMATION
  Report Type: 
  Country: None (occurrence: None)
  Receive Date: 20090219
  Receipt Date: 20090217
  Transmission Date: 20090719
  Serious: Yes (Death)
  Sender: FDA-Public Use
  Company Number: PHHY2009US05428

PATIENT
  Sex: Male

DRUGS (4)
  1. CLOZARIL [Suspect]
     Indication: SCHIZOPHRENIA
     Dosage: 300 MG/DAY
     Route: 048
  2. VALIUM [Suspect]
     Indication: MUSCLE SPASMS
     Dosage: 6.5 MG DAILY
     Route: 048
  3. LEXAPRO [Suspect]
     Indication: DEPRESSION
     Dosage: 10 MG DAILY
     Route: 048
  4. MS CONTIN [Suspect]
     Indication: PAIN

REACTIONS (1)
  - SPINA BIFIDA [None]
